FAERS Safety Report 6193100-X (Version None)
Quarter: 2009Q2

REPORT INFORMATION
  Report Type: 
  Country: None (occurrence: None)
  Receive Date: 20090514
  Receipt Date: 20090514
  Transmission Date: 20091009
  Serious: No
  Sender: FDA-Public Use
  Company Number: None

PATIENT
  Sex: Female

DRUGS (1)
  1. METHOTREXATE [Suspect]
     Indication: PEMPHIGUS
     Dosage: 5 MG WEEKLY PO
     Route: 048
     Dates: start: 20090410, end: 20090424

REACTIONS (2)
  - STOMATITIS [None]
  - WHITE BLOOD CELL COUNT DECREASED [None]
